FAERS Safety Report 14091751 (Version 2)
Quarter: 2018Q1

REPORT INFORMATION
  Report Type: Spontaneous
  Country: US (occurrence: US)
  Receive Date: 20171016
  Receipt Date: 20180110
  Transmission Date: 20180508
  Serious: No
  Sender: FDA-Public Use
  Company Number: US-PFIZER INC-2017440720

PATIENT
  Age: 67 Year
  Sex: Female

DRUGS (1)
  1. XELJANZ XR [Suspect]
     Active Substance: TOFACITINIB CITRATE
     Indication: ARTHRITIS
     Dosage: 11 MG, 1X/DAY
     Dates: start: 20171117

REACTIONS (2)
  - Medication residue present [Recovered/Resolved]
  - Drug ineffective [Recovered/Resolved]
